FAERS Safety Report 6556134-9 (Version None)
Quarter: 2010Q1

REPORT INFORMATION
  Report Type: 
  Country: None (occurrence: None)
  Receive Date: 20100128
  Receipt Date: 20090423
  Transmission Date: 20100710
  Serious: Yes (Hospitalization)
  Sender: FDA-Public Use
  Company Number: US-TEVA-192661USA

PATIENT
  Sex: Female

DRUGS (4)
  1. COPAXONE [Suspect]
     Indication: MULTIPLE SCLEROSIS
     Route: 058
     Dates: start: 20090101
  2. CILEST [Concomitant]
     Route: 048
  3. MULTIVITAMIN                       /00831701/ [Concomitant]
     Route: 048
  4. DURACET [Concomitant]

REACTIONS (7)
  - CHEST DISCOMFORT [None]
  - HYPOAESTHESIA [None]
  - INJECTION SITE ANAESTHESIA [None]
  - SWELLING FACE [None]
  - SWOLLEN TONGUE [None]
  - TACHYCARDIA [None]
  - VOMITING [None]
